FAERS Safety Report 11236361 (Version 1)
Quarter: 2015Q3

REPORT INFORMATION
  Report Type: Spontaneous
  Country: IT (occurrence: IT)
  Receive Date: 20150702
  Receipt Date: 20150702
  Transmission Date: 20151125
  Serious: Yes (Death)
  Sender: FDA-Public Use
  Company Number: IT-009507513-1506ITA011350

PATIENT
  Age: 49 Year
  Sex: Male

DRUGS (10)
  1. HUMALOG [Concomitant]
     Active Substance: INSULIN LISPRO
     Dosage: STRENGHT: 100 U/ML
     Dates: start: 20150224, end: 20150507
  2. ABILIFY [Concomitant]
     Active Substance: ARIPIPRAZOLE
     Indication: SCHIZOPHRENIA
     Dosage: UNK
     Dates: start: 20131016, end: 20150507
  3. TALOFEN [Concomitant]
     Active Substance: PROMAZINE HYDROCHLORIDE
     Indication: SCHIZOPHRENIA
     Dosage: STRENGHT: 4G/100ML, FORMULATION: ORAL DROPS
     Dates: start: 20131016, end: 20150507
  4. INVEGA [Concomitant]
     Active Substance: PALIPERIDONE
     Indication: SCHIZOPHRENIA
     Dosage: UNK
     Route: 048
     Dates: start: 20131016, end: 20150507
  5. SOVALDI [Suspect]
     Active Substance: SOFOSBUVIR
     Indication: HEPATITIS C ANTIBODY POSITIVE
     Dosage: 400 MG, DAILY
     Route: 048
     Dates: start: 20150428, end: 20150507
  6. TAVOR [Concomitant]
     Active Substance: LORAZEPAM
     Indication: SCHIZOPHRENIA
  7. DELORAZEPAM [Concomitant]
     Active Substance: DELORAZEPAM
     Indication: SCHIZOPHRENIA
     Dosage: UNK
     Dates: start: 20131016, end: 20150507
  8. LANTUS [Concomitant]
     Active Substance: INSULIN GLARGINE
     Dosage: STRENGHT: 100 U/ML
     Dates: start: 20150224, end: 20150507
  9. REBETOL [Suspect]
     Active Substance: RIBAVIRIN
     Indication: HEPATITIS C ANTIBODY POSITIVE
     Dosage: 1000 MG, DAILY
     Route: 048
     Dates: start: 20150428, end: 20150507
  10. OLYSIO [Suspect]
     Active Substance: SIMEPREVIR
     Indication: HEPATITIS C ANTIBODY POSITIVE
     Dosage: 150 MG, DAILY
     Dates: start: 20150428, end: 20150507

REACTIONS (1)
  - Sudden death [Fatal]

NARRATIVE: CASE EVENT DATE: 20150504
